FAERS Safety Report 20416977 (Version 1)
Quarter: 2022Q1

REPORT INFORMATION
  Report Type: Spontaneous
  Country: US (occurrence: US)
  Receive Date: 20220202
  Receipt Date: 20220202
  Transmission Date: 20220423
  Serious: Yes (Hospitalization, Other)
  Sender: FDA-Public Use
  Company Number: US-BEXIMCO-2022BEX00002

PATIENT
  Sex: Male
  Weight: 124.26 kg

DRUGS (20)
  1. SOTALOL HYDROCHLORIDE [Suspect]
     Active Substance: SOTALOL HYDROCHLORIDE
     Indication: Atrial fibrillation
     Dosage: 80 MG, 2X/DAY
     Route: 048
     Dates: start: 1982, end: 20201125
  2. SOTALOL HYDROCHLORIDE [Suspect]
     Active Substance: SOTALOL HYDROCHLORIDE
     Dosage: CUT HIS DOSE IN HALF
     Dates: start: 20201125, end: 20201127
  3. SOTALOL HYDROCHLORIDE [Suspect]
     Active Substance: SOTALOL HYDROCHLORIDE
     Dosage: 80 MG, 2X/DAY
     Dates: start: 20201127
  4. SOTALOL HYDROCHLORIDE [Suspect]
     Active Substance: SOTALOL HYDROCHLORIDE
     Dosage: 80 MG, 2X/DAY
     Dates: end: 202201
  5. SOTALOL HYDROCHLORIDE [Suspect]
     Active Substance: SOTALOL HYDROCHLORIDE
     Indication: Atrial fibrillation
     Dosage: UNK
  6. SOTALOL HYDROCHLORIDE [Suspect]
     Active Substance: SOTALOL HYDROCHLORIDE
     Dosage: UNK
     Dates: start: 20210312, end: 2021
  7. FAMOTIDINE [Concomitant]
     Active Substance: FAMOTIDINE
     Dosage: UNK, 2X/DAY
  8. FAMOTIDINE [Concomitant]
     Active Substance: FAMOTIDINE
     Dosage: UNK, DOESN^T TAKE IT LIKE HE SHOULD
  9. SUCRALFATE [Concomitant]
     Active Substance: SUCRALFATE
     Dosage: 1 G, 3X/DAY
  10. SUCRALFATE [Concomitant]
     Active Substance: SUCRALFATE
     Dosage: UNK, DOESN^T TAKE IT LIKE HE SHOULD
  11. TRAMADOL [Concomitant]
     Active Substance: TRAMADOL
     Dosage: UNK, AS NEEDED
  12. OXYCODONE [Concomitant]
     Active Substance: OXYCODONE
     Dosage: UNK, AS NEEDED
  13. ASPIRIN [Concomitant]
     Active Substance: ASPIRIN
     Dosage: 81 MG, 1X/DAY
  14. WARFARIN [Concomitant]
     Active Substance: WARFARIN
     Dosage: 5 MG, 5X/WEEK (SUNDAY, TUESDAY, THURSDAY, FRIDAY, SATURDAY)
  15. WARFARIN [Concomitant]
     Active Substance: WARFARIN
     Dosage: 10 MG, 2X/WEEK (MONDAY AND WEDNESDAY)
  16. LACTULOSE [Concomitant]
     Active Substance: LACTULOSE
  17. CYCLOBENZAPRINE [Concomitant]
     Active Substance: CYCLOBENZAPRINE
     Dosage: 10 MG, 1X/DAY
  18. HERBALS\TURMERIC [Concomitant]
     Active Substance: HERBALS\TURMERIC
     Dosage: WHEN HE THINKS OF IT
  19. FISH OIL [Concomitant]
     Active Substance: FISH OIL
     Dosage: 1-2 TIMES DAILY WHEN HE THINKS OF IT
  20. ALBUTEROL SULFATE [Concomitant]
     Active Substance: ALBUTEROL SULFATE
     Dosage: 6.7 G, AS NEEDED

REACTIONS (7)
  - Atrial fibrillation [Recovering/Resolving]
  - Gallbladder disorder [Recovering/Resolving]
  - Chest pain [Recovering/Resolving]
  - Ventricular tachycardia [Recovering/Resolving]
  - Skeletal injury [Unknown]
  - Off label use [Recovered/Resolved]
  - Product dose omission issue [Recovered/Resolved]

NARRATIVE: CASE EVENT DATE: 19820101
